FAERS Safety Report 4921140-4 (Version None)
Quarter: 2006Q1

REPORT INFORMATION
  Report Type: 
  Country: None (occurrence: None)
  Receive Date: 20060217
  Receipt Date: 20060210
  Transmission Date: 20060701
  Serious: Yes (Other)
  Sender: FDA-Public Use
  Company Number: 2005US000869

PATIENT
  Age: 60 Year
  Sex: Female

DRUGS (5)
  1. PROGRAF [Suspect]
     Indication: PROPHYLAXIS AGAINST TRANSPLANT REJECTION
     Dosage: UNK
     Route: 065
     Dates: start: 20050301
  2. EPREX [Suspect]
     Indication: ANAEMIA
     Dosage: 4000 IU, UNKNOWN/D, IV NOS
     Route: 042
  3. PREDNISONE TAB [Concomitant]
  4. WARFARIN SODIUM [Concomitant]
  5. CYCLOSPORINE [Concomitant]

REACTIONS (1)
  - APLASIA PURE RED CELL [None]
